FAERS Safety Report 10416359 (Version 4)
Quarter: 2015Q3

REPORT INFORMATION
  Report Type: Spontaneous
  Country: US (occurrence: US)
  Receive Date: 20140828
  Receipt Date: 20150818
  Transmission Date: 20151125
  Serious: No
  Sender: FDA-Public Use
  Company Number: US-GILEAD-2014-0113203

PATIENT
  Age: 64 Year
  Sex: Male

DRUGS (6)
  1. REVATIO [Concomitant]
     Active Substance: SILDENAFIL CITRATE
  2. LETAIRIS [Suspect]
     Active Substance: AMBRISENTAN
     Indication: PRODUCT USED FOR UNKNOWN INDICATION
     Dosage: 10 MG, QD
     Route: 065
     Dates: start: 20130109
  3. TYVASO [Suspect]
     Active Substance: TREPROSTINIL
     Indication: PULMONARY ARTERIAL HYPERTENSION
     Dosage: 18 MCG (3 BREATHS), QID
     Route: 055
     Dates: start: 20140822
  4. TYVASO [Suspect]
     Active Substance: TREPROSTINIL
     Dosage: 54 ?G (9 BREATHS), QID
     Route: 055
  5. ASPIRIN                            /00002701/ [Concomitant]
     Active Substance: ASPIRIN
  6. TYVASO [Suspect]
     Active Substance: TREPROSTINIL
     Dosage: 36 ?G (6 BREATHS), QID
     Route: 055
     Dates: start: 20140829

REACTIONS (6)
  - Fatigue [Unknown]
  - Nasal congestion [Not Recovered/Not Resolved]
  - Headache [Not Recovered/Not Resolved]
  - Dizziness [Unknown]
  - Palpitations [Recovered/Resolved]
  - Pain in jaw [Unknown]

NARRATIVE: CASE EVENT DATE: 20140822
